FAERS Safety Report 10365067 (Version 1)
Quarter: 2014Q3

REPORT INFORMATION
  Report Type: Spontaneous
  Country: US (occurrence: None)
  Receive Date: 20140805
  Receipt Date: 20140805
  Transmission Date: 20150326
  Serious: Yes (Hospitalization)
  Sender: FDA-Public Use
  Company Number: None

PATIENT
  Age: 57 Year
  Sex: Female

DRUGS (2)
  1. SOVALDI [Concomitant]
     Active Substance: SOFOSBUVIR
  2. OLYSIO [Suspect]
     Active Substance: SIMEPREVIR
     Indication: HEPATITIS
     Dosage: 1 CAPSULE  QD ORAL
     Route: 048
     Dates: start: 20140619

REACTIONS (6)
  - Balance disorder [None]
  - Vertigo [None]
  - Blood potassium increased [None]
  - Dizziness [None]
  - Nausea [None]
  - Paraesthesia oral [None]

NARRATIVE: CASE EVENT DATE: 20140714
